FAERS Safety Report 10089839 (Version 1)
Quarter: 2014Q2

REPORT INFORMATION
  Report Type: Spontaneous
  Country: US (occurrence: US)
  Receive Date: 20140421
  Receipt Date: 20140421
  Transmission Date: 20141212
  Serious: No
  Sender: FDA-Public Use
  Company Number: US-ABBVIE-14P-163-1207759-00

PATIENT
  Age: 10 Year
  Sex: Male
  Weight: 29.51 kg

DRUGS (2)
  1. LUPRON DEPOT-PED (3 MONTH) [Suspect]
     Indication: BONE DENSITY INCREASED
     Route: 030
     Dates: start: 201312
  2. LEVOTHYROXINE [Concomitant]
     Indication: HYPOTHYROIDISM

REACTIONS (6)
  - Disturbance in attention [Not Recovered/Not Resolved]
  - Acne [Not Recovered/Not Resolved]
  - Rash papular [Not Recovered/Not Resolved]
  - Rash papular [Not Recovered/Not Resolved]
  - Skin disorder [Not Recovered/Not Resolved]
  - Off label use [Not Recovered/Not Resolved]
